FAERS Safety Report 6159729-X (Version None)
Quarter: 2009Q2

REPORT INFORMATION
  Report Type: 
  Country: None (occurrence: None)
  Receive Date: 20090420
  Receipt Date: 20090409
  Transmission Date: 20091009
  Serious: Yes (Death, Life-Threatening, Hospitalization)
  Sender: FDA-Public Use
  Company Number: JP-BAYER-200911124BYL

PATIENT
  Age: 71 Year
  Sex: Male

DRUGS (15)
  1. FLUDARA [Suspect]
     Indication: PERIPHERAL T-CELL LYMPHOMA UNSPECIFIED
     Dosage: TOTAL DAILY DOSE: 50 MG  UNIT DOSE: 10 MG
     Route: 048
     Dates: start: 20080729, end: 20080802
  2. ENDOXAN [Suspect]
     Indication: PERIPHERAL T-CELL LYMPHOMA UNSPECIFIED
     Dosage: AS USED: 200 MG
     Route: 048
     Dates: start: 20080729, end: 20080802
  3. ITRIZOLE [Suspect]
     Indication: ANTIFUNGAL PROPHYLAXIS
     Dosage: AS USED: 200 MG
     Route: 042
     Dates: start: 20080802, end: 20080813
  4. NEUTROGIN [Suspect]
     Indication: NEUTROPHIL COUNT DECREASED
     Dosage: AS USED: 250 ?G
     Route: 042
     Dates: start: 20080802, end: 20080915
  5. MAXIPIME [Suspect]
     Indication: PROPHYLAXIS
     Dosage: AS USED: 4 G
     Route: 042
     Dates: start: 20080802, end: 20080814
  6. MEROPEN [Suspect]
     Indication: PROPHYLAXIS
     Dosage: AS USED: 2 G
     Route: 042
     Dates: start: 20080820, end: 20080902
  7. VFEND [Suspect]
     Indication: ANTIFUNGAL PROPHYLAXIS
     Dosage: AS USED: 400 MG
     Route: 042
     Dates: start: 20080917, end: 20080924
  8. CARBENIN [Suspect]
     Indication: PNEUMONIA
     Dosage: AS USED: 2 G
     Route: 042
     Dates: start: 20080917, end: 20080924
  9. CIPROXAN [Suspect]
     Indication: PNEUMONIA
     Dosage: AS USED: 600 MG
     Route: 041
     Dates: start: 20080921, end: 20081001
  10. CONCENTRATED RED CELLS [Concomitant]
     Indication: CYSTITIS HAEMORRHAGIC
     Dosage: 2 UNITS
     Route: 042
     Dates: start: 20080829, end: 20080829
  11. CONCENTRATED RED CELLS [Concomitant]
     Dosage: 2 UNITS
     Route: 042
     Dates: start: 20080905, end: 20080905
  12. CONCENTRATED RED CELLS [Concomitant]
     Dosage: 2 UNITS
     Route: 042
     Dates: start: 20080926, end: 20080926
  13. CONCENTRATED RED CELLS [Concomitant]
     Dosage: 2 UNITS
     Route: 042
     Dates: start: 20080919, end: 20080919
  14. CONCENTRATED RED CELLS [Concomitant]
     Dosage: 2 UNITS
     Route: 042
     Dates: start: 20080910, end: 20080910
  15. CONCENTRATED RED CELLS [Concomitant]
     Dosage: 2 UNITS
     Route: 042
     Dates: start: 20080929, end: 20080929

REACTIONS (10)
  - ANAEMIA [None]
  - BLOOD ALKALINE PHOSPHATASE INCREASED [None]
  - CYSTITIS HAEMORRHAGIC [None]
  - GAMMA-GLUTAMYLTRANSFERASE INCREASED [None]
  - HYPOALBUMINAEMIA [None]
  - LYMPHOCYTE COUNT DECREASED [None]
  - NEUTROPHIL COUNT DECREASED [None]
  - PNEUMONIA [None]
  - RENAL DISORDER [None]
  - RENAL FAILURE [None]
